FAERS Safety Report 8833126 (Version 1)
Quarter: 2012Q4

REPORT INFORMATION
  Report Type: 
  Country: CN (occurrence: CN)
  Receive Date: 20121010
  Receipt Date: 20121010
  Transmission Date: 20130627
  Serious: Yes (Hospitalization, Other)
  Sender: FDA-Public Use
  Company Number: CN-JNJFOC-20121000755

PATIENT
  Age: 59 Year
  Sex: Female

DRUGS (3)
  1. REMICADE [Suspect]
     Indication: RHEUMATOID ARTHRITIS
     Route: 042
     Dates: start: 20120928
  2. REMICADE [Suspect]
     Indication: RHEUMATOID ARTHRITIS
     Dosage: Strength: 100 mg (dosage was not reported) at week 0, 2, 6, 8. 8 times in total.
     Route: 042
     Dates: start: 2006
  3. METHOTREXATE [Concomitant]
     Route: 065

REACTIONS (1)
  - Cervix carcinoma [Recovered/Resolved]
